FAERS Safety Report 4881380-X (Version None)
Quarter: 2006Q1

REPORT INFORMATION
  Report Type: 
  Country: None (occurrence: None)
  Receive Date: 20060116
  Receipt Date: 20050606
  Transmission Date: 20060701
  Serious: Yes (Hospitalization)
  Sender: FDA-Public Use
  Company Number: PHHO2005AU08869

PATIENT
  Age: 55 Year
  Sex: Male

DRUGS (12)
  1. NEORAL [Suspect]
     Indication: RENAL TRANSPLANT
     Dosage: 225 MG, BID
     Route: 048
     Dates: start: 20041025
  2. NEORAL [Suspect]
     Dosage: 100 MG, BID
     Route: 048
  3. NEORAL [Suspect]
     Dosage: 175 MG, BID
     Route: 048
     Dates: end: 20041121
  4. MYCOPHENOLATE MOFETIL [Suspect]
     Indication: RENAL TRANSPLANT
     Dosage: 1000 MG, BID
     Route: 048
     Dates: start: 20041016
  5. MYCOPHENOLATE MOFETIL [Suspect]
     Dosage: 1000 MG, TID
     Route: 048
  6. PREDNISONE [Suspect]
     Indication: RENAL TRANSPLANT
     Dosage: 20 MG/DAY
     Route: 048
     Dates: start: 20041120
  7. SIROLIMUS [Suspect]
     Indication: RENAL TRANSPLANT
     Dosage: 2 MG/DAY
     Route: 048
     Dates: start: 20041121
  8. NYSTATIN [Concomitant]
     Dates: start: 20041016
  9. RESPRIM [Concomitant]
     Dates: start: 20041016
  10. VALGANCICLOVIR [Concomitant]
     Dates: start: 20041016
  11. ATENOLOL [Concomitant]
     Dates: start: 20040306
  12. FELODIPINE [Concomitant]
     Dates: start: 20020101

REACTIONS (6)
  - ABDOMINAL DISTENSION [None]
  - BLOOD CREATININE INCREASED [None]
  - DRUG TOXICITY [None]
  - ILEUS [None]
  - LYMPHOCELE [None]
  - NEPHROPATHY TOXIC [None]
